FAERS Safety Report 12912015 (Version 1)
Quarter: 2016Q4

REPORT INFORMATION
  Report Type: Spontaneous
  Country: JP (occurrence: JP)
  Receive Date: 20161104
  Receipt Date: 20161104
  Transmission Date: 20170207
  Serious: Yes (Life-Threatening, Other)
  Sender: FDA-Public Use
  Company Number: JP-JNJFOC-20160917343

PATIENT
  Age: 68 Year
  Sex: Male
  Weight: 64.49 kg

DRUGS (12)
  1. XARELTO [Suspect]
     Active Substance: RIVAROXABAN
     Indication: ATRIAL FIBRILLATION
     Route: 048
  2. VOGLIBOSE [Concomitant]
     Active Substance: VOGLIBOSE
     Route: 048
  3. LANDSEN [Concomitant]
     Active Substance: CLONAZEPAM
     Route: 048
     Dates: start: 20151214, end: 20160910
  4. HAEMOLEX [Concomitant]
     Route: 054
     Dates: start: 20150723
  5. ALACEPRIL [Concomitant]
     Active Substance: ALACEPRIL
     Route: 048
     Dates: end: 20161008
  6. SODIUM PICOSULFATE [Concomitant]
     Active Substance: SODIUM PICOSULFATE
     Dosage: QUANTITY SUFFICIENT
     Route: 048
  7. LANDSEN [Concomitant]
     Active Substance: CLONAZEPAM
     Route: 048
     Dates: end: 20151213
  8. ARTIST [Concomitant]
     Active Substance: CARVEDILOL
     Route: 048
  9. METFORMIN HYDROCHLORIDE. [Concomitant]
     Active Substance: METFORMIN HYDROCHLORIDE
     Route: 048
     Dates: end: 20161002
  10. XARELTO [Suspect]
     Active Substance: RIVAROXABAN
     Indication: CEREBROVASCULAR ACCIDENT PROPHYLAXIS
     Route: 048
  11. FUROSEMIDE. [Concomitant]
     Active Substance: FUROSEMIDE
     Route: 048
  12. FERROUS CITRATE [Concomitant]
     Active Substance: FERROUS CITRATE
     Route: 048
     Dates: start: 20161002

REACTIONS (3)
  - Haemorrhoidal haemorrhage [Not Recovered/Not Resolved]
  - Haematochezia [Not Recovered/Not Resolved]
  - Acute respiratory failure [Recovered/Resolved]

NARRATIVE: CASE EVENT DATE: 20160915
